FAERS Safety Report 4612907-0 (Version None)
Quarter: 2005Q1

REPORT INFORMATION
  Report Type: 
  Country: None (occurrence: None)
  Receive Date: 20050318
  Receipt Date: 20050314
  Transmission Date: 20050727
  Serious: Yes (Other)
  Sender: FDA-Public Use
  Company Number: GB-GLAXOSMITHKLINE-B0374673A

PATIENT
  Sex: Female

DRUGS (4)
  1. PAROXETINE HCL [Suspect]
     Indication: DEPRESSION
     Route: 048
     Dates: start: 19970101
  2. THYROXINE [Concomitant]
  3. DIAZEPAM [Concomitant]
  4. CO CODAMOL [Concomitant]

REACTIONS (12)
  - AGGRESSION [None]
  - ALOPECIA [None]
  - CRYING [None]
  - DIFFICULTY IN WALKING [None]
  - EYE PAIN [None]
  - HEADACHE [None]
  - LOCAL SWELLING [None]
  - MOOD SWINGS [None]
  - PAIN [None]
  - PEPTIC ULCER [None]
  - PHOTOSENSITIVITY REACTION [None]
  - SUICIDAL IDEATION [None]
